FAERS Safety Report 14789493 (Version 1)
Quarter: 2018Q2

REPORT INFORMATION
  Report Type: Spontaneous
  Country: US (occurrence: US)
  Receive Date: 20180423
  Receipt Date: 20180423
  Transmission Date: 20180711
  Serious: No
  Sender: FDA-Public Use
  Company Number: US-TEVA-2018-US-865748

PATIENT
  Age: 68 Year
  Sex: Male

DRUGS (1)
  1. GLIPIZIDE W/METFORMIN [Suspect]
     Active Substance: GLIPIZIDE\METFORMIN HYDROCHLORIDE
     Dosage: 5 MG / 500 MG
     Route: 065

REACTIONS (1)
  - Drug ineffective [Unknown]

NARRATIVE: CASE EVENT DATE: 20180218
